FAERS Safety Report 14978674 (Version 3)
Quarter: 2018Q3

REPORT INFORMATION
  Report Type: Report from Study
  Country: JP (occurrence: JP)
  Receive Date: 20180606
  Receipt Date: 20180822
  Transmission Date: 20181010
  Serious: Yes (Hospitalization, Disabling)
  Sender: FDA-Public Use
  Company Number: JP-JT-EVA201801509KERYXP-001

PATIENT
  Age: 87 Year
  Sex: Male
  Weight: 47 kg

DRUGS (13)
  1. FOSRENOL [Concomitant]
     Active Substance: LANTHANUM CARBONATE
     Indication: HYPERPHOSPHATAEMIA
     Dosage: 750 MG, QD
     Route: 048
     Dates: start: 20180129
  2. MIRCERA [Concomitant]
     Active Substance: METHOXY POLYETHYLENE GLYCOL-EPOETIN BETA
     Indication: NEPHROGENIC ANAEMIA
     Dosage: 50 MICRO?G, 2 DOSES IN 3 MONTHS
     Route: 065
  3. DIOVAN [Concomitant]
     Active Substance: VALSARTAN
     Dosage: 80 MG, QD
     Route: 048
  4. BISOPROLOL FUMARATE. [Concomitant]
     Active Substance: BISOPROLOL FUMARATE
     Dosage: 2.5 MG, QD
     Route: 048
     Dates: start: 20180126
  5. TRULICITY [Concomitant]
     Active Substance: DULAGLUTIDE
     Dosage: 0.75 MG, QD
     Route: 058
  6. CALCITRIOL. [Concomitant]
     Active Substance: CALCITRIOL
     Indication: HYPERPARATHYROIDISM SECONDARY
     Dosage: 0.5 MICRO?G, QD
     Route: 048
     Dates: start: 20170628
  7. WARFARIN                           /00014803/ [Concomitant]
     Active Substance: WARFARIN
     Dosage: 3.75 MG, QD
     Route: 048
     Dates: end: 20180130
  8. RIONA [Suspect]
     Active Substance: FERRIC CITRATE ANHYDROUS
     Indication: HYPERPHOSPHATAEMIA
     Dosage: 250 MG, QD
     Route: 048
     Dates: start: 20170927, end: 20180202
  9. SUREPOST [Concomitant]
     Active Substance: REPAGLINIDE
     Dosage: 0.5 MG, QD
     Route: 048
     Dates: start: 20171206
  10. LIVALO [Concomitant]
     Active Substance: PITAVASTATIN CALCIUM
     Dosage: 1 MG, QD
     Route: 048
  11. ATELEC [Concomitant]
     Active Substance: CILNIDIPINE
     Dosage: 10 MG, QD
     Route: 048
     Dates: end: 20180202
  12. ATEDIO [Concomitant]
     Dosage: 1 DF, QD
     Route: 048
     Dates: end: 20180205
  13. NESP [Concomitant]
     Active Substance: DARBEPOETIN ALFA
     Indication: NEPHROGENIC ANAEMIA
     Dosage: 60 MICRO?G, 9 DOSES IN 3 MONTHS
     Route: 065

REACTIONS (3)
  - Oedema due to renal disease [Recovering/Resolving]
  - Shunt occlusion [Recovered/Resolved]
  - End stage renal disease [Not Recovered/Not Resolved]

NARRATIVE: CASE EVENT DATE: 20180113
